FAERS Safety Report 15876873 (Version 1)
Quarter: 2019Q1

REPORT INFORMATION
  Report Type: Spontaneous
  Country: HU (occurrence: HU)
  Receive Date: 20190127
  Receipt Date: 20190127
  Transmission Date: 20190417
  Serious: Yes (Other)
  Sender: FDA-Public Use
  Company Number: HU-ROCHE-2248988

PATIENT
  Sex: Female

DRUGS (6)
  1. TAXOTERE [Concomitant]
     Active Substance: DOCETAXEL
     Indication: OSTEITIS DEFORMANS
     Route: 065
     Dates: start: 201004, end: 201305
  2. KADCYLA [Suspect]
     Active Substance: ADO-TRASTUZUMAB EMTANSINE
     Indication: OSTEITIS DEFORMANS
     Route: 048
     Dates: start: 20130711, end: 20150501
  3. PERJETA [Suspect]
     Active Substance: PERTUZUMAB
     Indication: OSTEITIS DEFORMANS
     Route: 065
     Dates: start: 20130711, end: 20150501
  4. HERCEPTIN [Suspect]
     Active Substance: TRASTUZUMAB
     Indication: OSTEITIS DEFORMANS
     Route: 042
     Dates: start: 2006
  5. HERCEPTIN [Suspect]
     Active Substance: TRASTUZUMAB
     Route: 042
     Dates: start: 201004, end: 201305
  6. ZOLEDRONIC ACID [Concomitant]
     Active Substance: ZOLEDRONIC ACID
     Route: 065
     Dates: start: 2010, end: 2013

REACTIONS (1)
  - Neoplasm skin [Unknown]

NARRATIVE: CASE EVENT DATE: 2015
